FAERS Safety Report 14035704 (Version 1)
Quarter: 2017Q4

REPORT INFORMATION
  Report Type: Spontaneous
  Country: US (occurrence: US)
  Receive Date: 20171003
  Receipt Date: 20171003
  Transmission Date: 20180321
  Serious: No
  Sender: FDA-Public Use
  Company Number: US-AMGEN-USASP2016151906

PATIENT

DRUGS (5)
  1. FEMARA [Concomitant]
     Active Substance: LETROZOLE
  2. LETROZOLE. [Concomitant]
     Active Substance: LETROZOLE
  3. AFINITOR [Concomitant]
     Active Substance: EVEROLIMUS
  4. METFORMIN [Concomitant]
     Active Substance: METFORMIN HYDROCHLORIDE
     Indication: BLOOD GLUCOSE ABNORMAL
  5. XGEVA [Suspect]
     Active Substance: DENOSUMAB
     Indication: PRODUCT USED FOR UNKNOWN INDICATION
     Dosage: UNK
     Route: 065

REACTIONS (3)
  - Quality of life decreased [Unknown]
  - Fatigue [Unknown]
  - Pain [Unknown]
